FAERS Safety Report 17980061 (Version 1)
Quarter: 2020Q3

REPORT INFORMATION
  Report Type: Spontaneous
  Country: DE (occurrence: DE)
  Receive Date: 20200703
  Receipt Date: 20200703
  Transmission Date: 20201103
  Serious: Yes (Life-Threatening, Hospitalization)
  Sender: FDA-Public Use
  Company Number: DE-MYLANLABS-2020M1059906

PATIENT
  Age: 4 Decade
  Sex: Male

DRUGS (12)
  1. AKRINOR [Suspect]
     Active Substance: CAFEDRINE HYDROCHLORIDE\THEODRENALINE
     Indication: TOXICITY TO VARIOUS AGENTS
  2. NALOXONE [Suspect]
     Active Substance: NALOXONE
     Indication: HYPOTENSION
  3. AKRINOR [Suspect]
     Active Substance: CAFEDRINE HYDROCHLORIDE\THEODRENALINE
     Indication: HYPERCAPNIA
  4. NALOXONE [Suspect]
     Active Substance: NALOXONE
     Indication: BRADYPNOEA
  5. NALOXONE [Suspect]
     Active Substance: NALOXONE
     Indication: TOXICITY TO VARIOUS AGENTS
  6. NALOXONE [Suspect]
     Active Substance: NALOXONE
     Indication: HYPERCAPNIA
  7. AKRINOR [Suspect]
     Active Substance: CAFEDRINE HYDROCHLORIDE\THEODRENALINE
     Indication: HYPOTENSION
  8. NALOXONE [Suspect]
     Active Substance: NALOXONE
     Indication: BRADYCARDIA
  9. AKRINOR [Suspect]
     Active Substance: CAFEDRINE HYDROCHLORIDE\THEODRENALINE
     Indication: BRADYCARDIA
  10. AKRINOR [Suspect]
     Active Substance: CAFEDRINE HYDROCHLORIDE\THEODRENALINE
     Indication: BRADYPNOEA
  11. NALOXONE [Suspect]
     Active Substance: NALOXONE
     Indication: LOSS OF CONSCIOUSNESS
     Dosage: 0.4 MILLIGRAM SINGLE DOSE
     Route: 065
  12. AKRINOR [Suspect]
     Active Substance: CAFEDRINE HYDROCHLORIDE\THEODRENALINE
     Indication: LOSS OF CONSCIOUSNESS
     Route: 065

REACTIONS (1)
  - Drug ineffective [Unknown]
